FAERS Safety Report 25660847 (Version 1)
Quarter: 2025Q3

REPORT INFORMATION
  Report Type: Spontaneous
  Country: SA (occurrence: SA)
  Receive Date: 20250808
  Receipt Date: 20250808
  Transmission Date: 20251020
  Serious: Yes (Other)
  Sender: BIOCON
  Company Number: SA-BIOCON BIOLOGICS LIMITED-BBL2025004332

PATIENT

DRUGS (3)
  1. ADALIMUMAB [Suspect]
     Active Substance: ADALIMUMAB
     Indication: Psoriasis
     Dosage: 40 MG, Q2W
     Route: 058
     Dates: start: 202012
  2. CLOBETASOL [Concomitant]
     Active Substance: CLOBETASOL
     Indication: Skin plaque
     Route: 065
  3. CALCIPOTRIENE [Concomitant]
     Active Substance: CALCIPOTRIENE
     Indication: Skin plaque
     Route: 065

REACTIONS (2)
  - Hepatotoxicity [Recovered/Resolved]
  - Hepatic function abnormal [Recovered/Resolved]
